FAERS Safety Report 9806108 (Version 2)
Quarter: 2014Q1

REPORT INFORMATION
  Report Type: Spontaneous
  Country: US (occurrence: US)
  Receive Date: 20140109
  Receipt Date: 20140214
  Transmission Date: 20141002
  Serious: No
  Sender: FDA-Public Use
  Company Number: US-009507513-1401USA003368

PATIENT
  Age: 66 Year
  Sex: Female
  Weight: 72.56 kg

DRUGS (1)
  1. OXYTROL FOR WOMEN [Suspect]
     Indication: BLADDER DISORDER
     Dosage: UNK, UNKNOWN
     Route: 062
     Dates: start: 20131101, end: 20131120

REACTIONS (1)
  - Drug ineffective [Unknown]
